FAERS Safety Report 23618456 (Version 2)
Quarter: 2024Q1

REPORT INFORMATION
  Report Type: Other
  Country: GB (occurrence: GB)
  Receive Date: 20240311
  Receipt Date: 20240322
  Transmission Date: 20240409
  Serious: Yes (Death, Life-Threatening, Hospitalization, Other)
  Sender: FDA-Public Use
  Company Number: None

PATIENT
  Age: 29 Year
  Sex: Female

DRUGS (3)
  1. TRAMADOL [Suspect]
     Active Substance: TRAMADOL\TRAMADOL HYDROCHLORIDE
     Indication: Back pain
     Dosage: UNK, FURTHER PRESCRIPTION ISSUED 15 DAYS LATER
     Route: 065
  2. TRAMADOL [Suspect]
     Active Substance: TRAMADOL\TRAMADOL HYDROCHLORIDE
     Dosage: UNK
     Route: 065
  3. WARFARIN [Suspect]
     Active Substance: WARFARIN
     Indication: Product used for unknown indication
     Dosage: UNK
     Route: 065

REACTIONS (5)
  - Malaise [Fatal]
  - International normalised ratio increased [Fatal]
  - Drug interaction [Fatal]
  - Condition aggravated [Fatal]
  - Cerebral haemorrhage [Fatal]
